FAERS Safety Report 25227617 (Version 1)
Quarter: 2025Q2

REPORT INFORMATION
  Report Type: Spontaneous
  Country: US (occurrence: US)
  Receive Date: 20250422
  Receipt Date: 20250422
  Transmission Date: 20250717
  Serious: Yes (Hospitalization)
  Sender: ALEXION PHARMACEUTICALS
  Company Number: US-AstraZeneca-CH-00852457A

PATIENT
  Age: 78 Year

DRUGS (1)
  1. WAINUA [Suspect]
     Active Substance: EPLONTERSEN
     Indication: Polyneuropathy
     Dosage: UNK, QMONTH

REACTIONS (2)
  - Renal function test abnormal [Recovering/Resolving]
  - Blood pressure decreased [Recovering/Resolving]
